FAERS Safety Report 13801959 (Version 2)
Quarter: 2017Q3

REPORT INFORMATION
  Report Type: Spontaneous
  Country: CN (occurrence: CN)
  Receive Date: 20170727
  Receipt Date: 20170815
  Transmission Date: 20171127
  Serious: Yes (Death, Hospitalization, Other)
  Sender: FDA-Public Use
  Company Number: CN-ASTRAZENECA-2017SE69534

PATIENT
  Age: 50 Year
  Sex: Female

DRUGS (1)
  1. IRESSA [Suspect]
     Active Substance: GEFITINIB
     Indication: NON-SMALL CELL LUNG CANCER
     Route: 048
     Dates: start: 20170518, end: 20170620

REACTIONS (5)
  - Renal failure [Not Recovered/Not Resolved]
  - Tumour compression [Unknown]
  - Death [Fatal]
  - Azotaemia [Unknown]
  - Ureteric compression [Unknown]

NARRATIVE: CASE EVENT DATE: 20170629
